FAERS Safety Report 18792341 (Version 2)
Quarter: 2021Q3

REPORT INFORMATION
  Report Type: Spontaneous
  Country: JP (occurrence: JP)
  Receive Date: 20210127
  Receipt Date: 20210930
  Transmission Date: 20211014
  Serious: Yes (Death, Other)
  Sender: FDA-Public Use
  Company Number: JP-AMGEN-JPNSP2021011442

PATIENT
  Sex: Male
  Weight: 61 kg

DRUGS (5)
  1. PERINDOPRIL [Concomitant]
     Active Substance: PERINDOPRIL
     Indication: CARDIAC FAILURE CHRONIC
     Dosage: UNK
     Route: 048
     Dates: end: 20210107
  2. FUROSEMIDE. [Concomitant]
     Active Substance: FUROSEMIDE
     Indication: CARDIAC FAILURE CHRONIC
     Dosage: UNK
     Route: 048
     Dates: end: 20210107
  3. CORALAN [Suspect]
     Active Substance: IVABRADINE HYDROCHLORIDE
     Indication: CARDIAC FAILURE CHRONIC
     Dosage: 2.5 MG, BID
     Route: 048
     Dates: start: 20201211, end: 20210107
  4. SELARA [Concomitant]
     Active Substance: EPLERENONE
     Indication: CARDIAC FAILURE CHRONIC
     Dosage: UNK
     Route: 048
     Dates: end: 20210107
  5. CARVEDILOL. [Concomitant]
     Active Substance: CARVEDILOL
     Indication: PRODUCT USED FOR UNKNOWN INDICATION
     Dosage: 5 MILLIGRAM, QD
     Route: 048
     Dates: end: 20210107

REACTIONS (1)
  - Pneumonia aspiration [Fatal]

NARRATIVE: CASE EVENT DATE: 20210107
